FAERS Safety Report 14307183 (Version 1)
Quarter: 2017Q4

REPORT INFORMATION
  Report Type: Spontaneous
  Country: US (occurrence: US)
  Receive Date: 20171219
  Receipt Date: 20171219
  Transmission Date: 20180321
  Serious: Yes (Hospitalization)
  Sender: FDA-Public Use
  Company Number: None

PATIENT
  Age: 21 Year
  Sex: Male
  Weight: 81.7 kg

DRUGS (1)
  1. BOTOX [Suspect]
     Active Substance: ONABOTULINUMTOXINA
     Indication: MUSCLE SPASTICITY
     Dosage: ?          OTHER FREQUENCY:ONCE;?
     Route: 030
     Dates: start: 20171213, end: 20171213

REACTIONS (6)
  - Gait disturbance [None]
  - Ophthalmoplegia [None]
  - Asthenia [None]
  - Muscular weakness [None]
  - Cranial nerve disorder [None]
  - Botulism [None]

NARRATIVE: CASE EVENT DATE: 20171219
